FAERS Safety Report 8821785 (Version 2)
Quarter: 2012Q4

REPORT INFORMATION
  Report Type: 
  Country: US (occurrence: US)
  Receive Date: 20121002
  Receipt Date: 20121011
  Transmission Date: 20130627
  Serious: Yes (Life-Threatening, Hospitalization, Other)
  Sender: FDA-Public Use
  Company Number: US-ROCHE-1137620

PATIENT
  Age: 39 Year
  Sex: Male
  Weight: 86.26 kg

DRUGS (6)
  1. XOLAIR [Suspect]
     Indication: ASTHMA
     Route: 058
     Dates: start: 20120802, end: 20120802
  2. XOLAIR [Suspect]
     Indication: RHINITIS
  3. ADVAIR DISKUS [Concomitant]
     Indication: ASTHMA
     Dosage: 500/50 mcg 1 puff
     Route: 048
     Dates: start: 20101013
  4. ZYFLO CR [Concomitant]
     Indication: ASTHMA
     Route: 048
     Dates: start: 20120604
  5. PROAIR (UNITED STATES) [Concomitant]
     Indication: ASTHMA
     Route: 048
     Dates: start: 20110420
  6. FLONASE [Concomitant]
     Indication: RHINITIS
     Dosage: 2 sprays in each nostril
     Route: 045
     Dates: start: 20040615

REACTIONS (6)
  - Anaphylactic reaction [Recovered/Resolved]
  - Loss of consciousness [Recovered/Resolved]
  - Skin discolouration [Recovered/Resolved]
  - Pallor [Recovered/Resolved]
  - Tremor [Recovered/Resolved]
  - Hyperhidrosis [Recovered/Resolved]
